FAERS Safety Report 11541436 (Version 1)
Quarter: 2015Q3

REPORT INFORMATION
  Report Type: Spontaneous
  Country: US (occurrence: US)
  Receive Date: 20150923
  Receipt Date: 20150923
  Transmission Date: 20151125
  Serious: No
  Sender: FDA-Public Use
  Company Number: US-KOWA-2015S1000278

PATIENT
  Age: 82 Year
  Sex: Female
  Weight: 68.9 kg

DRUGS (7)
  1. LOSARTAN POTASSIUM. [Concomitant]
     Active Substance: LOSARTAN POTASSIUM
     Dosage: 100 MG, QD
  2. ASA [Concomitant]
     Active Substance: ASPIRIN
     Dosage: 81 MG, UNK
  3. FERROUS SULFATE [Concomitant]
     Active Substance: FERROUS SULFATE\FERROUS SULFATE, DRIED
     Dosage: 325 MG, QD
  4. AMLODIPINE [Concomitant]
     Active Substance: AMLODIPINE BESYLATE
     Dosage: 2.5 MG, BID
  5. LIVALO [Suspect]
     Active Substance: PITAVASTATIN CALCIUM
     Dosage: 2 MG, QW
     Route: 048
     Dates: start: 2015
  6. ATENOLOL. [Concomitant]
     Active Substance: ATENOLOL
     Dosage: 50 MG, BID
  7. LIVALO [Suspect]
     Active Substance: PITAVASTATIN CALCIUM
     Dosage: 2 MG, QOD
     Route: 048
     Dates: start: 2014, end: 201501

REACTIONS (4)
  - Lacrimation increased [Recovering/Resolving]
  - Pollakiuria [Recovered/Resolved]
  - Urine odour abnormal [Recovered/Resolved]
  - Inappropriate schedule of drug administration [Unknown]

NARRATIVE: CASE EVENT DATE: 2014
